FAERS Safety Report 9703366 (Version 2)
Quarter: 2013Q4

REPORT INFORMATION
  Report Type: Spontaneous
  Country: JP (occurrence: JP)
  Receive Date: 20131122
  Receipt Date: 20131122
  Transmission Date: 20140711
  Serious: Yes (Hospitalization)
  Sender: FDA-Public Use
  Company Number: JP-ASTRAZENECA-2013SE74673

PATIENT
  Sex: Male

DRUGS (2)
  1. NEXIUM [Suspect]
     Dosage: DOSE UNKNOWN
     Route: 048
  2. OMEPRAL [Suspect]
     Dosage: 20
     Route: 041

REACTIONS (2)
  - Haemolytic anaemia [Not Recovered/Not Resolved]
  - Dysphagia [Unknown]
